FAERS Safety Report 21671473 (Version 1)
Quarter: 2022Q4

REPORT INFORMATION
  Report Type: Spontaneous
  Country: US (occurrence: US)
  Receive Date: 20221202
  Receipt Date: 20221202
  Transmission Date: 20230112
  Serious: Yes (Other)
  Sender: FDA-Public Use
  Company Number: US-drreddys-LIT/USA/22/0157690

PATIENT
  Age: 69 Year
  Sex: Male

DRUGS (6)
  1. DEXAMETHASONE [Suspect]
     Active Substance: DEXAMETHASONE
     Indication: Neurotoxicity
     Dosage: 10MG EVERY 6 HOURS FROM DAYS 9 TO 11
  2. VALGANCICLOVIR [Suspect]
     Active Substance: VALGANCICLOVIR
     Indication: Human herpesvirus 6 encephalitis
     Dosage: 900MG TWICE DAILY
  3. TOCILIZUMAB [Suspect]
     Active Substance: TOCILIZUMAB
     Indication: Cytokine release syndrome
     Dosage: ON DAYS 4 AND 5 560MG
  4. GANCICLOVIR [Suspect]
     Active Substance: GANCICLOVIR
     Dosage: 5 MG/KG Q12H
  5. FLUDARABINE [Concomitant]
     Active Substance: FLUDARABINE PHOSPHATE
     Indication: Diffuse large B-cell lymphoma
  6. CYCLOPHOSPHAMIDE [Concomitant]
     Active Substance: CYCLOPHOSPHAMIDE
     Indication: Diffuse large B-cell lymphoma

REACTIONS (4)
  - Human herpesvirus 6 encephalitis [Unknown]
  - Memory impairment [Unknown]
  - Confabulation [Unknown]
  - Product use in unapproved indication [Unknown]
